FAERS Safety Report 8619939-6 (Version None)
Quarter: 2012Q3

REPORT INFORMATION
  Report Type: 
  Country: None (occurrence: None)
  Receive Date: 20120824
  Receipt Date: 20120809
  Transmission Date: 20120928
  Serious: Yes (Hospitalization, Other)
  Sender: FDA-Public Use
  Company Number: JP-009507513-1208JPN004829

PATIENT

DRUGS (11)
  1. PEG-INTRON [Suspect]
     Dosage: 0.08 UNK, UNK
     Route: 058
     Dates: start: 20120614, end: 20120622
  2. TELAVIC [Suspect]
     Indication: HEPATITIS C
     Dosage: 1500 MG, QD
     Route: 048
     Dates: start: 20120426, end: 20120628
  3. PEG-INTRON [Suspect]
     Indication: HEPATITIS C
     Dosage: 0.83 MICROGRAM PER KILOGRAM, QW
     Route: 058
     Dates: start: 20120426, end: 20120501
  4. PEG-INTRON [Suspect]
     Dosage: 0.21 MICROGRAM PER KILOGRAM, UNK
     Route: 058
     Dates: start: 20120530
  5. TALION (BEPOTASTINE BESYLATE) [Concomitant]
     Dosage: UNK
     Route: 048
     Dates: start: 20120628
  6. RABEPRAZOLE SODIUM [Concomitant]
     Indication: PROPHYLAXIS
     Dosage: 10 MG, UNK
     Route: 048
     Dates: start: 20120426
  7. REBETOL [Suspect]
     Dosage: 200 MG, QD
     Route: 048
     Dates: start: 20120517, end: 20120628
  8. PEG-INTRON [Suspect]
     Dosage: 0.42 MICROGRAM PER KILOGRAM, QW
     Route: 058
     Dates: start: 20120502, end: 20120530
  9. TALION (BEPOTASTINE BESYLATE) [Concomitant]
     Indication: PROPHYLAXIS
     Dosage: 10 MG, BID
     Route: 048
     Dates: start: 20120426
  10. ALLOPURINOL [Concomitant]
     Indication: HYPERURICAEMIA
     Dosage: 100 MG, TID
     Route: 048
     Dates: start: 20120502, end: 20120628
  11. REBETOL [Suspect]
     Indication: HEPATITIS C
     Dosage: 400 UNK, UNK
     Route: 048
     Dates: start: 20120426, end: 20120516

REACTIONS (1)
  - BONE MARROW FAILURE [None]
